FAERS Safety Report 15001204 (Version 1)
Quarter: 2018Q2

REPORT INFORMATION
  Report Type: Spontaneous
  Country: US (occurrence: US)
  Receive Date: 20180523
  Receipt Date: 20180523
  Transmission Date: 20180711
  Serious: Yes (Other)
  Sender: FDA-Public Use
  Company Number: None

PATIENT
  Age: 71 Year
  Sex: Female
  Weight: 81 kg

DRUGS (2)
  1. FLUPHENAZINE [Suspect]
     Active Substance: FLUPHENAZINE
     Indication: SCHIZOPHRENIA
     Dosage: ?          QUANTITY:1 DF DOSAGE FORM;?
  2. CALCIUM [Concomitant]
     Active Substance: CALCIUM

REACTIONS (5)
  - Urinary tract infection [None]
  - Pollakiuria [None]
  - Constipation [None]
  - Cystitis [None]
  - Ear infection [None]

NARRATIVE: CASE EVENT DATE: 20090101
